FAERS Safety Report 19519407 (Version 1)
Quarter: 2021Q3

REPORT INFORMATION
  Report Type: Spontaneous
  Country: US (occurrence: US)
  Receive Date: 20210712
  Receipt Date: 20210712
  Transmission Date: 20211014
  Serious: Yes (Hospitalization)
  Sender: FDA-Public Use
  Company Number: None

PATIENT
  Age: 63 Year
  Sex: Female

DRUGS (1)
  1. ESBRIET [Suspect]
     Active Substance: PIRFENIDONE
     Indication: INTERSTITIAL LUNG DISEASE
     Dosage: ?          OTHER DOSE:3 CAPS;?
     Route: 048
     Dates: start: 20180203

REACTIONS (5)
  - Gastrointestinal disorder [None]
  - Condition aggravated [None]
  - Nausea [None]
  - Pneumonia [None]
  - Bronchitis [None]

NARRATIVE: CASE EVENT DATE: 20210509
